FAERS Safety Report 5354074-4 (Version None)
Quarter: 2007Q2

REPORT INFORMATION
  Report Type: 
  Country: None (occurrence: None)
  Receive Date: 20070608
  Receipt Date: 20070608
  Transmission Date: 20071010
  Serious: Yes (Hospitalization)
  Sender: FDA-Public Use
  Company Number: None

PATIENT
  Sex: Male
  Weight: 99.5 kg

DRUGS (2)
  1. DOCETAXEL (TAXOTERE)(628503) [Suspect]
     Dosage: 320 MG
  2. LEUPROLIDE ACETATE [Suspect]
     Dosage: 80 MG

REACTIONS (2)
  - ACTIVITIES OF DAILY LIVING IMPAIRED [None]
  - FATIGUE [None]
